FAERS Safety Report 8476988-9 (Version None)
Quarter: 2012Q2

REPORT INFORMATION
  Report Type: 
  Country: None (occurrence: None)
  Receive Date: 20120629
  Receipt Date: 20120620
  Transmission Date: 20120825
  Serious: No
  Sender: FDA-Public Use
  Company Number: US-BIOGENIDEC-2012BI021973

PATIENT
  Sex: Female

DRUGS (2)
  1. UNSPECIFIED MEDICATION [Concomitant]
     Indication: OSTEOPOROSIS
  2. AVONEX [Suspect]
     Indication: MULTIPLE SCLEROSIS
     Route: 030
     Dates: start: 19960701

REACTIONS (2)
  - OSTEOPOROSIS [None]
  - SCAR [None]
